FAERS Safety Report 5506685-0 (Version None)
Quarter: 2007Q4

REPORT INFORMATION
  Report Type: 
  Country: None (occurrence: None)
  Receive Date: 20071101
  Receipt Date: 20071005
  Transmission Date: 20080405
  Serious: Yes (Hospitalization)
  Sender: FDA-Public Use
  Company Number: 60504

PATIENT
  Sex: Female

DRUGS (2)
  1. IBUPROFEN [Suspect]
     Indication: ANALGESIA
     Dosage: ORAL
     Route: 048
  2. DESMOPRESSIN ACETATE [Concomitant]

REACTIONS (4)
  - BLOOD OSMOLARITY DECREASED [None]
  - COMA [None]
  - HYPONATRAEMIA [None]
  - LOSS OF CONSCIOUSNESS [None]
